FAERS Safety Report 6846667-X (Version None)
Quarter: 2010Q3

REPORT INFORMATION
  Report Type: 
  Country: None (occurrence: None)
  Receive Date: 20100713
  Receipt Date: 20100702
  Transmission Date: 20110219
  Serious: Yes (Other)
  Sender: FDA-Public Use
  Company Number: 8047345

PATIENT
  Age: 68 Year
  Sex: Female

DRUGS (2)
  1. PREDNISOLONE [Suspect]
     Indication: INTERSTITIAL LUNG DISEASE
     Dosage: ( 30 MG QD ORAL)
     Route: 048
  2. AZATHIOPRINE [Suspect]
     Indication: INTERSTITIAL LUNG DISEASE
     Dosage: (50 MG TID ORAL), (50 MG BID ORAL), (5 MG QD ORAL)
     Route: 046

REACTIONS (5)
  - BRONCHIECTASIS [None]
  - CUSHINGOID [None]
  - MALAISE [None]
  - METABOLIC DISORDER [None]
  - PANCYTOPENIA [None]
